FAERS Safety Report 23804630 (Version 2)
Quarter: 2024Q2

REPORT INFORMATION
  Report Type: Spontaneous
  Country: JP (occurrence: JP)
  Receive Date: 20240501
  Receipt Date: 20240520
  Transmission Date: 20240716
  Serious: Yes (Other)
  Sender: FDA-Public Use
  Company Number: JP-ELI_LILLY_AND_COMPANY-JP202403008747

PATIENT
  Age: 71 Year
  Sex: Female

DRUGS (5)
  1. OLUMIANT [Suspect]
     Active Substance: BARICITINIB
     Indication: Rheumatoid arthritis
     Dosage: 4 MG, DAILY
     Route: 048
     Dates: end: 20240311
  2. DENOSUMAB [Concomitant]
     Active Substance: DENOSUMAB
  3. IGURATIMOD [Concomitant]
     Active Substance: IGURATIMOD
  4. PREGABALIN [Concomitant]
     Active Substance: PREGABALIN
  5. ALFACALCIDOL [Concomitant]
     Active Substance: ALFACALCIDOL

REACTIONS (3)
  - Femoral neck fracture [Recovering/Resolving]
  - Rheumatoid arthritis [Recovered/Resolved]
  - Anaemia [Recovered/Resolved]

NARRATIVE: CASE EVENT DATE: 20231201
